FAERS Safety Report 5401543-4 (Version None)
Quarter: 2007Q3

REPORT INFORMATION
  Report Type: 
  Country: None (occurrence: None)
  Receive Date: 20070713
  Receipt Date: 20070702
  Transmission Date: 20080115
  Serious: No
  Sender: FDA-Public Use
  Company Number: 2007-160779-NL

PATIENT
  Age: 67 Year
  Sex: Male

DRUGS (1)
  1. TICE BCG [Suspect]
     Dosage: INTRAVESICAL
     Route: 043
     Dates: start: 20070101

REACTIONS (1)
  - HAEMOPTYSIS [None]
